FAERS Safety Report 17960501 (Version 1)
Quarter: 2020Q2

REPORT INFORMATION
  Report Type: Spontaneous
  Country: FR (occurrence: FR)
  Receive Date: 20200630
  Receipt Date: 20200630
  Transmission Date: 20200714
  Serious: Yes (Hospitalization)
  Sender: FDA-Public Use
  Company Number: FR-BAUSCH-BL-2020-017921

PATIENT
  Age: 20 Year
  Sex: Male
  Weight: 71 kg

DRUGS (4)
  1. GENTAMICINE [Suspect]
     Active Substance: GENTAMICIN
     Indication: ANTIBIOTIC THERAPY
     Dosage: NR
     Route: 042
     Dates: start: 20200516, end: 20200517
  2. PIPERACILLINE SODIQUE [Suspect]
     Active Substance: PIPERACILLIN
     Indication: ANTIBIOTIC THERAPY
     Dosage: NR
     Route: 042
     Dates: start: 20200516
  3. VANCOMYCINE [Suspect]
     Active Substance: VANCOMYCIN
     Indication: ANTIBIOTIC THERAPY
     Dosage: NR
     Route: 042
     Dates: start: 20200516, end: 20200517
  4. TAZOBACTAM SODIQUE [Suspect]
     Active Substance: TAZOBACTAM SODIUM
     Indication: ANTIBIOTIC THERAPY
     Dosage: NR
     Route: 042
     Dates: start: 20200516

REACTIONS (1)
  - Acute kidney injury [Recovering/Resolving]

NARRATIVE: CASE EVENT DATE: 20200517
